FAERS Safety Report 24602801 (Version 2)
Quarter: 2024Q4

REPORT INFORMATION
  Report Type: Spontaneous
  Country: SI (occurrence: SI)
  Receive Date: 20241111
  Receipt Date: 20241125
  Transmission Date: 20250115
  Serious: Yes (Hospitalization)
  Sender: BOEHRINGER INGELHEIM
  Company Number: None

PATIENT
  Age: 79 Year
  Sex: Male

DRUGS (16)
  1. JARDIANCE [Suspect]
     Active Substance: EMPAGLIFLOZIN
     Indication: Cardiac failure
     Route: 048
     Dates: start: 20241007, end: 20241019
  2. JARDIANCE [Suspect]
     Active Substance: EMPAGLIFLOZIN
     Indication: Heart rate
  3. FUROSEMIDE [Concomitant]
     Active Substance: FUROSEMIDE
     Indication: Product used for unknown indication
  4. EUTHYROX [Concomitant]
     Active Substance: LEVOTHYROXINE SODIUM
     Indication: Product used for unknown indication
     Dosage: STRENGHT: 25 UG?DOSE: 75 UG 1X/DAY
  5. PANTOPRAZOLE [Concomitant]
     Active Substance: PANTOPRAZOLE
     Indication: Product used for unknown indication
  6. ATORVASTATIN [Concomitant]
     Active Substance: ATORVASTATIN
     Indication: Product used for unknown indication
  7. LOKELMA [Concomitant]
     Active Substance: SODIUM ZIRCONIUM CYCLOSILICATE
     Indication: Product used for unknown indication
  8. ALDACTONE [Concomitant]
     Active Substance: SPIRONOLACTONE
     Indication: Product used for unknown indication
  9. Amoksiklav 500 MG/125 MG [Concomitant]
     Indication: Product used for unknown indication
     Dosage: STRENGHT: 500 MG/125 MG
  10. INSULIN ASPART [Concomitant]
     Active Substance: INSULIN ASPART
     Indication: Product used for unknown indication
     Dosage: STRENGHT: 100 E./ML ?DOSE: 10 UNIT IN THE MORNING
  11. CONCOR COR 2,5 MG [Concomitant]
     Indication: Product used for unknown indication
     Dosage: 1/2TBL IN THE MORNING
  12. WARFARIN SODIUM [Concomitant]
     Active Substance: WARFARIN SODIUM
     Indication: Product used for unknown indication
     Dosage: ACCORDING TO THE SCHEME
  13. Plivit D3 4000 IU [Concomitant]
     Indication: Product used for unknown indication
     Dosage: STRENGHT: 4000 I.E./ML
  14. ALOPURINOL BELUPO 100 MG [Concomitant]
     Indication: Product used for unknown indication
  15. Ezoleta 10 MG [Concomitant]
     Indication: Product used for unknown indication
  16. PORTALAK 667 MG/ML [Concomitant]
     Indication: Product used for unknown indication

REACTIONS (1)
  - Disease progression [Recovering/Resolving]

NARRATIVE: CASE EVENT DATE: 20241007
